FAERS Safety Report 8380216-2 (Version None)
Quarter: 2012Q2

REPORT INFORMATION
  Report Type: 
  Country: None (occurrence: None)
  Receive Date: 20120523
  Receipt Date: 20120516
  Transmission Date: 20120825
  Serious: Yes (Hospitalization, Other)
  Sender: FDA-Public Use
  Company Number: PHHY2012BR042619

PATIENT
  Sex: Female

DRUGS (3)
  1. OMEPRAZOLE [Concomitant]
     Indication: GASTRITIS
     Dosage: 1 DF, IN THE MORNING
  2. ONBREZ [Suspect]
     Indication: EMPHYSEMA
     Dates: start: 20111101, end: 20111101
  3. PARACETAMOL + CODEINE (PACO) [Concomitant]
     Indication: BACK PAIN
     Dosage: 1 DF, PRN

REACTIONS (3)
  - PULMONARY FUNCTION TEST DECREASED [None]
  - CARDIOMEGALY [None]
  - DYSPNOEA [None]
